FAERS Safety Report 12169259 (Version 3)
Quarter: 2016Q2

REPORT INFORMATION
  Report Type: Spontaneous
  Country: AU (occurrence: US)
  Receive Date: 20160310
  Receipt Date: 20160405
  Transmission Date: 20160815
  Serious: Yes (Death, Hospitalization, Other)
  Sender: FDA-Public Use
  Company Number: AU-BAYER-2016-047345

PATIENT
  Age: 71 Year
  Sex: Male

DRUGS (1)
  1. NEXAVAR [Suspect]
     Active Substance: SORAFENIB
     Indication: HEPATIC CANCER
     Dosage: UNK
     Route: 048
     Dates: start: 201506

REACTIONS (30)
  - Chills [None]
  - Arthropod bite [None]
  - Circulatory collapse [None]
  - Dyspnoea [None]
  - Swelling [None]
  - Pyrexia [Recovered/Resolved]
  - Tremor [None]
  - Sepsis [None]
  - Palpitations [None]
  - Feeling cold [None]
  - Asthenia [None]
  - Malaise [None]
  - Pain [None]
  - Syncope [None]
  - Burning sensation [None]
  - Death [Fatal]
  - Pruritus [None]
  - Immunodeficiency [None]
  - Dizziness [None]
  - Erythema [None]
  - Fluid retention [None]
  - Abdominal distension [None]
  - Chills [Recovered/Resolved]
  - Peripheral swelling [None]
  - Heart rate decreased [Fatal]
  - Dizziness [None]
  - Syncope [None]
  - Chest pain [None]
  - Palpitations [None]
  - Heart valve replacement [None]

NARRATIVE: CASE EVENT DATE: 201509
